FAERS Safety Report 9485150 (Version 2)
Quarter: 2013Q3

REPORT INFORMATION
  Report Type: Spontaneous
  Country: US (occurrence: US)
  Receive Date: 20130828
  Receipt Date: 20130828
  Transmission Date: 20140515
  Serious: No
  Sender: FDA-Public Use
  Company Number: US-ABBOTT-13P-163-1115337-00

PATIENT
  Age: 61 Year
  Sex: Male
  Weight: 118.04 kg

DRUGS (10)
  1. ANDROGEL [Suspect]
     Indication: BLOOD TESTOSTERONE DECREASED
     Route: 061
     Dates: start: 2013, end: 20130704
  2. METFORMIN [Concomitant]
     Indication: DIABETES MELLITUS
  3. GABAPENTIN [Concomitant]
     Indication: BACK PAIN
  4. ARTHROTEC [Concomitant]
     Indication: BACK PAIN
  5. FLEXERIL [Concomitant]
     Indication: BACK PAIN
  6. AMITRIPTYLINE [Concomitant]
     Indication: DEPRESSION
  7. VALSARTAN [Concomitant]
     Indication: HYPERTENSION
  8. SIMVASTATIN [Concomitant]
     Indication: BLOOD CHOLESTEROL INCREASED
  9. VITAMIN D2 [Concomitant]
     Indication: VITAMIN SUPPLEMENTATION
  10. LEVEMIR [Concomitant]
     Indication: DIABETES MELLITUS

REACTIONS (2)
  - Pain in extremity [Not Recovered/Not Resolved]
  - Nocturia [Not Recovered/Not Resolved]
